FAERS Safety Report 7636134-8 (Version None)
Quarter: 2011Q3

REPORT INFORMATION
  Report Type: 
  Country: None (occurrence: None)
  Receive Date: 20110726
  Receipt Date: 20110713
  Transmission Date: 20111222
  Serious: Yes (Other)
  Sender: FDA-Public Use
  Company Number: JP-ROCHE-791452

PATIENT
  Age: 31 Year
  Sex: Female

DRUGS (6)
  1. VITAMIN B6 [Concomitant]
     Dosage: FORM: PERORAL AGENT NOTE: DOSAGE IS UNCERTAIN.
     Route: 048
  2. TACROLIMUS [Concomitant]
     Dosage: FORM: PERORAL AGENT NOTE: DOSAGE IS UNCERTAIN.
     Route: 048
  3. ACTEMRA [Suspect]
     Indication: RHEUMATOID ARTHRITIS
     Dosage: NOTE: DOSAGE IS UNCERTAIN
     Route: 041
     Dates: start: 20100401
  4. FOLIC ACID [Concomitant]
     Dosage: FORM: PERORAL AGENT NOTE: DOSAGE IS UNCERTAIN.
     Route: 048
  5. VITAMIN B-12 [Concomitant]
     Dosage: FORM: PERORAL AGENT NOTE: DOSAGE IS UNCERTAIN.
     Route: 048
  6. METHOTREXATE [Concomitant]
     Dosage: FORM: PERORAL AGENT NOTE: DOSAGE IS UNCERTAIN
     Route: 048

REACTIONS (1)
  - HEREDITARY SIDEROBLASTIC ANAEMIA [None]
